FAERS Safety Report 21565300 (Version 1)
Quarter: 2022Q4

REPORT INFORMATION
  Report Type: Spontaneous
  Country: US (occurrence: US)
  Receive Date: 20221108
  Receipt Date: 20221108
  Transmission Date: 20230112
  Serious: No
  Sender: FDA-Public Use
  Company Number: US-OYSTER POINT PHARMA, INC.-2022OYS00779

PATIENT
  Sex: Male

DRUGS (1)
  1. TYRVAYA [Suspect]
     Active Substance: VARENICLINE TARTRATE
     Indication: Product used for unknown indication
     Dosage: 0.03 MCG, 1 SPRAY EACH NOSTRIL, APPLIED APPROPRIATELY INTO NASAL CAVITY
     Route: 045
     Dates: start: 20220726

REACTIONS (1)
  - Sneezing [Unknown]

NARRATIVE: CASE EVENT DATE: 20220726
